FAERS Safety Report 6128007-7 (Version None)
Quarter: 2009Q1

REPORT INFORMATION
  Report Type: 
  Country: None (occurrence: None)
  Receive Date: 20090319
  Receipt Date: 20090309
  Transmission Date: 20090719
  Serious: Yes (Hospitalization, Other)
  Sender: FDA-Public Use
  Company Number: CIR-GR-114-09

PATIENT
  Age: 60 Year
  Sex: Female

DRUGS (5)
  1. CIRCADIN (MELATONIN) [Suspect]
     Indication: INSOMNIA
     Dosage: 2 MG (IN THE EVENING), ORAL
     Route: 048
  2. STILNOX (ZOLPIDEM) [Concomitant]
  3. XANAX [Concomitant]
  4. CITALOPRAM HYDROBROMIDE [Concomitant]
  5. CERTRALINE (SERTRALINE) [Concomitant]

REACTIONS (5)
  - ANXIETY [None]
  - DIARRHOEA [None]
  - GASTROINTESTINAL DISORDER [None]
  - INSOMNIA [None]
  - NAUSEA [None]
